FAERS Safety Report 5270329-6 (Version None)
Quarter: 2007Q1

REPORT INFORMATION
  Report Type: 
  Country: None (occurrence: None)
  Receive Date: 20070320
  Receipt Date: 20070308
  Transmission Date: 20070707
  Serious: Yes (Other)
  Sender: FDA-Public Use
  Company Number: IE-PFIZER INC-2007018462

PATIENT
  Sex: Female

DRUGS (1)
  1. LIPITOR [Suspect]

REACTIONS (5)
  - DIARRHOEA [None]
  - EPILEPSY [None]
  - HYPOTRICHOSIS [None]
  - OEDEMA PERIPHERAL [None]
  - PAIN [None]
